FAERS Safety Report 14339799 (Version 2)
Quarter: 2018Q2

REPORT INFORMATION
  Report Type: Spontaneous
  Country: CZ (occurrence: CZ)
  Receive Date: 20171230
  Receipt Date: 20180608
  Transmission Date: 20180711
  Serious: Yes (Other)
  Sender: FDA-Public Use
  Company Number: CZ-MYLANLABS-2017M1082854

PATIENT
  Age: 51 Year
  Sex: Female

DRUGS (5)
  1. DESLORATADINE MYLAN 5 MG, COMPRIM? PELLICUL? [Suspect]
     Active Substance: DESLORATADINE
     Indication: HYPERSENSITIVITY
     Dosage: 5 MG, BID
  2. DOXYHEXAL                          /00055701/ [Suspect]
     Active Substance: DOXYCYCLINE
     Indication: PRODUCT USED FOR UNKNOWN INDICATION
     Dosage: 100 MG, BID
     Dates: start: 201711, end: 201712
  3. PARALEN                            /00020001/ [Concomitant]
     Indication: PRODUCT USED FOR UNKNOWN INDICATION
  4. ERDOMED [Suspect]
     Active Substance: ERDOSTEINE
     Indication: PRODUCT USED FOR UNKNOWN INDICATION
     Dosage: 300 MG, BID
     Dates: start: 20171129, end: 201712
  5. MAXI-KALZ                          /00751520/ [Concomitant]
     Active Substance: CALCIUM CITRATE
     Indication: PRODUCT USED FOR UNKNOWN INDICATION
     Dosage: 1000 MG, BID

REACTIONS (8)
  - Lip swelling [Unknown]
  - Dry mouth [Unknown]
  - Headache [Unknown]
  - Ageusia [Unknown]
  - Eye oedema [Unknown]
  - Breast swelling [Unknown]
  - Oedema peripheral [Unknown]
  - Rash [Unknown]
